FAERS Safety Report 14324858 (Version 1)
Quarter: 2017Q4

REPORT INFORMATION
  Report Type: Spontaneous
  Country: CL (occurrence: CL)
  Receive Date: 20171226
  Receipt Date: 20171226
  Transmission Date: 20180321
  Serious: Yes (Other)
  Sender: FDA-Public Use
  Company Number: CL-TEVA-2017-CL-836048

PATIENT
  Age: 65 Year
  Sex: Female

DRUGS (2)
  1. ATORVASTATIN [Suspect]
     Active Substance: ATORVASTATIN
     Indication: DYSLIPIDAEMIA
     Dosage: 40 MILLIGRAM DAILY; 40MG/DAY
     Route: 065
  2. GEMFIBROZIL. [Suspect]
     Active Substance: GEMFIBROZIL
     Indication: DYSLIPIDAEMIA
     Dosage: 600 MILLIGRAM DAILY; 600MG A DAY
     Route: 048
     Dates: start: 201403

REACTIONS (2)
  - Disease recurrence [Recovering/Resolving]
  - Immune-mediated necrotising myopathy [Recovering/Resolving]
